FAERS Safety Report 7294031-4 (Version None)
Quarter: 2011Q1

REPORT INFORMATION
  Report Type: 
  Country: None (occurrence: None)
  Receive Date: 20110215
  Receipt Date: 20110207
  Transmission Date: 20110831
  Serious: Yes (Hospitalization, Other)
  Sender: FDA-Public Use
  Company Number: US-ROCHE-610570

PATIENT
  Sex: Female
  Weight: 60.3 kg

DRUGS (1)
  1. ACCUTANE [Suspect]
     Indication: ACNE
     Route: 065
     Dates: start: 19991101, end: 20000201

REACTIONS (18)
  - CROHN'S DISEASE [None]
  - ORAL HERPES [None]
  - ABDOMINAL DISTENSION [None]
  - INFLAMMATORY BOWEL DISEASE [None]
  - DEPRESSION [None]
  - HAEMORRHOIDS [None]
  - COLITIS [None]
  - GASTROINTESTINAL DISORDER [None]
  - DYSPEPSIA [None]
  - DIZZINESS [None]
  - ANAEMIA [None]
  - MENTAL DISORDER [None]
  - COLITIS ULCERATIVE [None]
  - ILEITIS [None]
  - SUICIDE ATTEMPT [None]
  - SUICIDAL IDEATION [None]
  - HAEMATOCHEZIA [None]
  - FAECES DISCOLOURED [None]
